FAERS Safety Report 14293036 (Version 2)
Quarter: 2018Q1

REPORT INFORMATION
  Report Type: Spontaneous
  Country: GB (occurrence: GB)
  Receive Date: 20171215
  Receipt Date: 20180129
  Transmission Date: 20180509
  Serious: Yes (Hospitalization)
  Sender: FDA-Public Use
  Company Number: GB-TEVA-2017-GB-833359

PATIENT
  Sex: Male

DRUGS (14)
  1. FINASTERIDE. [Concomitant]
     Active Substance: FINASTERIDE
  2. CASSIA [Concomitant]
  3. BISOPROLOL [Suspect]
     Active Substance: BISOPROLOL
     Route: 048
  4. GLYCERYL TRINITRATE [Concomitant]
     Active Substance: NITROGLYCERIN
  5. FUROSEMIDE. [Concomitant]
     Active Substance: FUROSEMIDE
  6. CO-CARELDOPA [Concomitant]
     Active Substance: CARBIDOPA\LEVODOPA
  7. IBUPROFEN. [Concomitant]
     Active Substance: IBUPROFEN
  8. SIMVASTATIN. [Concomitant]
     Active Substance: SIMVASTATIN
  9. TAMSULOSIN [Suspect]
     Active Substance: TAMSULOSIN
     Route: 048
  10. FLUTICASONE. [Concomitant]
     Active Substance: FLUTICASONE
  11. COLECALCIFEROL [Concomitant]
     Active Substance: CHOLECALCIFEROL
  12. RAMIPRIL. [Concomitant]
     Active Substance: RAMIPRIL
  13. ACETYLSALICYLIC ACID [Concomitant]
     Active Substance: ASPIRIN
  14. MIRTAZAPINE. [Concomitant]
     Active Substance: MIRTAZAPINE

REACTIONS (2)
  - Fall [Recovering/Resolving]
  - Orthostatic hypotension [Recovering/Resolving]
